FAERS Safety Report 10061626 (Version 1)
Quarter: 2014Q2

REPORT INFORMATION
  Report Type: Spontaneous
  Country: US (occurrence: None)
  Receive Date: 20140404
  Receipt Date: 20140404
  Transmission Date: 20141212
  Serious: Yes (Disabling)
  Sender: FDA-Public Use
  Company Number: None

PATIENT
  Age: 37 Year
  Sex: Male
  Weight: 86.18 kg

DRUGS (1)
  1. CIPROFLOXACIN [Suspect]
     Indication: CORNEAL ABRASION
     Dosage: 1/DROP PER EYE?THREE TIMES DAILY?INTO THE EYE
     Dates: start: 20140308, end: 20140308

REACTIONS (1)
  - Tendon pain [None]
